FAERS Safety Report 10822682 (Version 1)
Quarter: 2015Q1

REPORT INFORMATION
  Report Type: Report from Study
  Country: US (occurrence: US)
  Receive Date: 20150218
  Receipt Date: 20150218
  Transmission Date: 20150721
  Serious: No
  Sender: FDA-Public Use
  Company Number: US-ABBVIE-14K-163-1310281-00

PATIENT
  Sex: Male

DRUGS (4)
  1. XANAX [Suspect]
     Active Substance: ALPRAZOLAM
     Indication: PRODUCT USED FOR UNKNOWN INDICATION
     Route: 065
     Dates: start: 2014
  2. XANAX [Suspect]
     Active Substance: ALPRAZOLAM
     Dosage: QUARTER
     Route: 065
     Dates: start: 2014
  3. HUMIRA [Suspect]
     Active Substance: ADALIMUMAB
     Indication: CROHN^S DISEASE
     Route: 065
     Dates: start: 2011, end: 201409
  4. XANAX [Suspect]
     Active Substance: ALPRAZOLAM
     Dosage: HALF
     Route: 065
     Dates: start: 2014

REACTIONS (5)
  - Abdominal pain upper [Recovering/Resolving]
  - Anxiety [Unknown]
  - Malaise [Unknown]
  - Haematochezia [Unknown]
  - Drug ineffective [Unknown]

NARRATIVE: CASE EVENT DATE: 2014
